FAERS Safety Report 11841482 (Version 3)
Quarter: 2020Q1

REPORT INFORMATION
  Report Type: Report from Study
  Country: US (occurrence: US)
  Receive Date: 20151216
  Receipt Date: 20200304
  Transmission Date: 20200409
  Serious: Yes (Hospitalization, Other)
  Sender: FDA-Public Use
  Company Number: US-UCBSA-2015039783

PATIENT
  Age: 36 Year
  Sex: Female
  Weight: 47.7 kg

DRUGS (21)
  1. CERTOLIZUMAB PEGOL RA [Suspect]
     Active Substance: CERTOLIZUMAB PEGOL
     Indication: CROHN^S DISEASE
     Dosage: 400 MG, MONTHLY (QM) (INJECTED)
     Dates: start: 20110701, end: 20151220
  2. CYTOGAM [Concomitant]
     Active Substance: HUMAN CYTOMEGALOVIRUS IMMUNE GLOBULIN
     Indication: CYTOMEGALOVIRUS INFECTION
     Dosage: 150 MG/KG, MONTHLY (QM)
     Route: 042
     Dates: start: 20150714, end: 20151201
  3. VITAMIN D [Concomitant]
     Active Substance: VITAMIN D NOS
     Indication: PRODUCT USED FOR UNKNOWN INDICATION
     Dosage: 2000 IU, ONCE DAILY (QD)
     Route: 048
     Dates: start: 20150329, end: 20151006
  4. VITAMIN B12 [Concomitant]
     Active Substance: CYANOCOBALAMIN
     Indication: PRODUCT USED FOR UNKNOWN INDICATION
     Dosage: 500 MG, ONCE DAILY (QD)
     Route: 048
     Dates: start: 20150329, end: 20151220
  5. ONDANSETRON [Concomitant]
     Active Substance: ONDANSETRON
     Indication: RENAL PAIN
  6. FLUARIX NOS [Concomitant]
     Active Substance: INFLUENZA VIRUS VACCINE
     Indication: PRODUCT USED FOR UNKNOWN INDICATION
     Dosage: 1 DF, ONCE DAILY (QD) (1 SHOT)
     Dates: start: 20150929, end: 20150929
  7. CAFFEINE. [Concomitant]
     Active Substance: CAFFEINE
     Dosage: 3 SERVIN 1 DAY
     Route: 048
     Dates: start: 20150329, end: 20150426
  8. PRENATAL VITAMINS [Concomitant]
     Active Substance: VITAMINS
     Indication: PRODUCT USED FOR UNKNOWN INDICATION
     Dosage: 2 DF, ONCE DAILY (QD) (2 PILL AT ONCE)
     Route: 048
     Dates: start: 20150329, end: 20151220
  9. FOLIC ACID. [Concomitant]
     Active Substance: FOLIC ACID
     Indication: PRODUCT USED FOR UNKNOWN INDICATION
     Dosage: 4000 ?G, ONCE DAILY (QD)
     Route: 048
     Dates: start: 20150329, end: 20151220
  10. DPT [Concomitant]
     Active Substance: DIPHTHERIA AND TETANUS TOXOIDS AND PERTUSSIS VACCINE
     Indication: PRODUCT USED FOR UNKNOWN INDICATION
     Dosage: 1 DF, ONCE DAILY (QD) (1 SHOT 1 DAY)
     Dates: start: 20150403, end: 20150403
  11. NITROFURANTOIN. [Concomitant]
     Active Substance: NITROFURANTOIN
     Indication: URINARY TRACT INFECTION
     Dosage: 2 DF, ONCE DAILY (QD) (2 PILL 1 DAY)
     Route: 048
     Dates: start: 20150601, end: 20150607
  12. ONDANSETRON [Concomitant]
     Active Substance: ONDANSETRON
     Indication: NAUSEA
     Dosage: 24 MILLIGRAM, ONCE DAILY (QD)
     Route: 048
     Dates: start: 20151006, end: 20151030
  13. IMURAN [Concomitant]
     Active Substance: AZATHIOPRINE
     Indication: CROHN^S DISEASE
     Dosage: 100 MG, ONCE DAILY (QD)
     Dates: start: 20150329, end: 20151220
  14. FISH OIL [Concomitant]
     Active Substance: FISH OIL
     Indication: PRODUCT USED FOR UNKNOWN INDICATION
     Dosage: 2 DF, ONCE DAILY (QD)
     Route: 048
     Dates: start: 20150329
  15. CAFFEINE. [Concomitant]
     Active Substance: CAFFEINE
     Indication: PRODUCT USED FOR UNKNOWN INDICATION
     Dosage: 0.5 SERVIN 1 DAY
     Route: 048
     Dates: start: 20150427, end: 20151220
  16. ZITHROMAX [Concomitant]
     Active Substance: AZITHROMYCIN DIHYDRATE
     Indication: PERTUSSIS
     Dosage: 1 DF, ONCE DAILY (QD) (1 PILL 1 DAY)
     Route: 048
     Dates: start: 20150524, end: 20150527
  17. ZITHROMAX [Concomitant]
     Active Substance: AZITHROMYCIN DIHYDRATE
     Dosage: 1 DF, ONCE DAILY (QD) (1 PILL 1 DAY)
     Route: 048
     Dates: start: 20151112, end: 20151115
  18. ZITHROMAX [Concomitant]
     Active Substance: AZITHROMYCIN DIHYDRATE
     Indication: VIRAL INFECTION
     Dosage: 2 DF, ONCE DAILY (QD) (2 PILL 1 DAY)
     Route: 048
     Dates: start: 20150523, end: 20150523
  19. ZITHROMAX [Concomitant]
     Active Substance: AZITHROMYCIN DIHYDRATE
     Dosage: 2 DF, ONCE DAILY (QD) (2 PILL 1 DAY)
     Route: 048
     Dates: start: 20151111, end: 20151111
  20. DPT [Concomitant]
     Active Substance: DIPHTHERIA AND TETANUS TOXOIDS AND PERTUSSIS VACCINE
     Indication: OBSTETRIC INFECTION
     Dosage: 1 DF, ONCE DAILY (QD) (1 SHOT 1 DAY)
     Dates: start: 20150306, end: 20150306
  21. DPT [Concomitant]
     Active Substance: DIPHTHERIA AND TETANUS TOXOIDS AND PERTUSSIS VACCINE
     Dosage: 1 DF, ONCE DAILY (QD) (1 SHOT 1 DAY)
     Dates: start: 20151011, end: 20151011

REACTIONS (3)
  - Maternal exposure before pregnancy [Unknown]
  - Nephrolithiasis [Unknown]
  - Polyhydramnios [Unknown]

NARRATIVE: CASE EVENT DATE: 20150412
